FAERS Safety Report 6368857-5 (Version None)
Quarter: 2009Q3

REPORT INFORMATION
  Report Type: 
  Country: None (occurrence: None)
  Receive Date: 20090916
  Receipt Date: 20090908
  Transmission Date: 20100115
  Serious: Yes (Disabling)
  Sender: FDA-Public Use
  Company Number: ADR20342009

PATIENT
  Sex: 0

DRUGS (2)
  1. LAMOTRIGINE [Suspect]
     Dosage: 100MG, TRANSPLACENTAL
     Route: 064
  2. VALPROATE SODIUM (PARENT) [Concomitant]

REACTIONS (1)
  - AUTISM [None]
